FAERS Safety Report 20585292 (Version 2)
Quarter: 2022Q1

REPORT INFORMATION
  Report Type: Report from Study
  Country: IT (occurrence: IT)
  Receive Date: 20220312
  Receipt Date: 20220326
  Transmission Date: 20220423
  Serious: Yes (Other)
  Sender: FDA-Public Use
  Company Number: IT-BRISTOL-MYERS SQUIBB COMPANY-BMS-2022-035653

PATIENT

DRUGS (1)
  1. APIXABAN [Suspect]
     Active Substance: APIXABAN
     Indication: Cerebrovascular accident prophylaxis
     Dosage: UNK
     Route: 065
     Dates: start: 20200708

REACTIONS (1)
  - Anaemia [Recovered/Resolved with Sequelae]

NARRATIVE: CASE EVENT DATE: 20201102
